FAERS Safety Report 12160167 (Version 3)
Quarter: 2017Q1

REPORT INFORMATION
  Report Type: Spontaneous
  Country: JP (occurrence: JP)
  Receive Date: 20160308
  Receipt Date: 20170208
  Transmission Date: 20170428
  Serious: Yes (Death, Other)
  Sender: FDA-Public Use
  Company Number: JP-MALLINCKRODT-T201600756

PATIENT
  Age: 68 Year
  Sex: Male
  Weight: 51 kg

DRUGS (25)
  1. DOGMATYL [Concomitant]
     Active Substance: SULPIRIDE
     Indication: ANALGESIC THERAPY
     Dosage: UNK
     Route: 048
     Dates: end: 20130803
  2. REFLEX [Concomitant]
     Active Substance: MIRTAZAPINE
     Indication: ANALGESIC THERAPY
     Dosage: 15 MG
     Route: 048
     Dates: start: 20130819, end: 20130822
  3. RISPERDAL [Concomitant]
     Active Substance: RISPERIDONE
     Dosage: 1 MG
     Route: 048
     Dates: start: 20130920
  4. SERENACE [Concomitant]
     Active Substance: HALOPERIDOL
     Indication: ANALGESIC THERAPY
     Dosage: 0.3 ML
     Route: 051
     Dates: start: 20130811, end: 20130818
  5. METHADONE [Suspect]
     Active Substance: METHADONE HYDROCHLORIDE
     Dosage: 25 MG DAILY DOSE
     Route: 048
     Dates: start: 20130701, end: 20130805
  6. METHADONE [Suspect]
     Active Substance: METHADONE HYDROCHLORIDE
     Dosage: 10 MG, 30 MG DAILY DOSE
     Route: 048
     Dates: start: 20130806, end: 20130815
  7. MORPHINE HCL [Concomitant]
     Active Substance: MORPHINE HYDROCHLORIDE
     Indication: ANALGESIC THERAPY
     Dosage: 150-300 MG, PRN
     Route: 048
     Dates: start: 20130623
  8. NEXIUM [Concomitant]
     Active Substance: ESOMEPRAZOLE MAGNESIUM
     Dosage: 20 MG
     Route: 048
     Dates: start: 20130215
  9. WYPAX [Concomitant]
     Active Substance: LORAZEPAM
     Dosage: 0.5 MG
     Route: 048
     Dates: start: 20130708
  10. MIDAZOLAM [Concomitant]
     Active Substance: MIDAZOLAM HYDROCHLORIDE
     Indication: ANALGESIC THERAPY
     Dosage: 1 DF
     Route: 051
     Dates: start: 20130811
  11. MAGMITT [Concomitant]
     Active Substance: MAGNESIUM OXIDE
     Dosage: 2250 MG
     Route: 048
  12. CONBELBE [Concomitant]
     Dosage: 1 DF
     Route: 051
     Dates: start: 20130806, end: 20130811
  13. DECADRON [Concomitant]
     Active Substance: DEXAMETHASONE
     Indication: ANALGESIC THERAPY
     Dosage: 1 DF
     Route: 051
     Dates: start: 20130904, end: 20130916
  14. LECICARBON A [Concomitant]
     Dosage: 1 DF
     Route: 054
     Dates: start: 20130709
  15. METHADONE [Suspect]
     Active Substance: METHADONE HYDROCHLORIDE
     Indication: PRODUCT USED FOR UNKNOWN INDICATION
     Dosage: 5 MG, 15 MG DAILY DOSE
     Route: 048
     Dates: start: 20130624, end: 20130630
  16. METHADONE [Suspect]
     Active Substance: METHADONE HYDROCHLORIDE
     Dosage: 15 MG, 45 MG DAILY DOSE
     Route: 048
     Dates: start: 20130816, end: 20130822
  17. METHADONE [Suspect]
     Active Substance: METHADONE HYDROCHLORIDE
     Dosage: 90 MG DAILY DOSE
     Route: 048
     Dates: start: 20130917, end: 20130917
  18. MORPHES [Concomitant]
     Indication: ANALGESIC THERAPY
     Dosage: 150 MG
     Route: 048
     Dates: start: 20130701, end: 20130807
  19. CONBELBE [Concomitant]
     Dosage: 1 DF
     Route: 051
     Dates: start: 20130904, end: 20130910
  20. METHADONE [Suspect]
     Active Substance: METHADONE HYDROCHLORIDE
     Dosage: 25 MG, 75 MG DAILY DOSE
     Route: 048
     Dates: start: 20130827, end: 20130916
  21. MEDLENIK [Concomitant]
     Active Substance: CUPRIC SULFATE\FERRIC CHLORIDE\MANGANESE CHLORIDE\POTASSIUM IODIDE\ZINC SULFATE
     Dosage: 1 DF
     Route: 051
     Dates: start: 20130904, end: 20130910
  22. METHADONE [Suspect]
     Active Substance: METHADONE HYDROCHLORIDE
     Dosage: 20 MG, 60 MG DAILY DOSE
     Route: 048
     Dates: start: 20130823, end: 20130826
  23. METHADONE [Suspect]
     Active Substance: METHADONE HYDROCHLORIDE
     Dosage: 85 MG DAILY DOSE
     Route: 048
     Dates: start: 20130918, end: 20131007
  24. PREDNISOLONE. [Concomitant]
     Active Substance: PREDNISOLONE
     Dosage: 10 MG
     Route: 048
     Dates: start: 20130215, end: 20130807
  25. METHADONE [Suspect]
     Active Substance: METHADONE HYDROCHLORIDE
     Dosage: 95 MG DAILY DOSE
     Route: 048
     Dates: start: 20131008, end: 20131012

REACTIONS (3)
  - Gastric cancer [Fatal]
  - Blood potassium increased [Recovered/Resolved]
  - Delirium [Recovered/Resolved]

NARRATIVE: CASE EVENT DATE: 20130723
